FAERS Safety Report 4305899-5 (Version None)
Quarter: 2004Q1

REPORT INFORMATION
  Report Type: 
  Country: None (occurrence: None)
  Receive Date: 20040226
  Receipt Date: 20040219
  Transmission Date: 20041129
  Serious: Yes (Life-Threatening)
  Sender: FDA-Public Use
  Company Number: WAES 0402NZL00024

PATIENT
  Age: 75 Year
  Sex: Male

DRUGS (5)
  1. ATENOLOL [Concomitant]
  2. DILTIAZEM HYDROCHLORIDE [Suspect]
     Indication: HYPERTENSION
     Route: 048
     Dates: start: 20020904
  3. OMEPRAZOLE [Concomitant]
     Route: 048
  4. ZOCOR [Suspect]
     Indication: HYPERCHOLESTEROLAEMIA
     Route: 048
     Dates: end: 20030203
  5. TERAZOSIN HYDROCHLORIDE [Concomitant]
     Route: 048

REACTIONS (4)
  - DRUG INTERACTION [None]
  - HEPATIC ENZYME INCREASED [None]
  - MYOPATHY [None]
  - RHABDOMYOLYSIS [None]
